FAERS Safety Report 5007913-0 (Version None)
Quarter: 2006Q2

REPORT INFORMATION
  Report Type: 
  Country: None (occurrence: None)
  Receive Date: 20060517
  Receipt Date: 20050503
  Transmission Date: 20061013
  Serious: Yes (Death)
  Sender: FDA-Public Use
  Company Number: 2006RR-02189

PATIENT
  Age: 78 Year
  Sex: Female

DRUGS (4)
  1. AMLODIPINE [Suspect]
     Dosage: 430 MG
  2. ISOSORBIDE MONONITRATE [Suspect]
     Dosage: 2G
  3. BENAZEPRIL                  (BENAZEPRIL) [Suspect]
     Dosage: 250 MG
  4. MIRTAZAPINE [Suspect]
     Dosage: 600 MG

REACTIONS (12)
  - ANURIA [None]
  - HYPERVENTILATION [None]
  - HYPOTHERMIA [None]
  - INTENTIONAL OVERDOSE [None]
  - INTESTINAL ISCHAEMIA [None]
  - LACTIC ACIDOSIS [None]
  - OLIGURIA [None]
  - RESPIRATORY ALKALOSIS [None]
  - SEPTIC SHOCK [None]
  - SHOCK [None]
  - SUICIDE ATTEMPT [None]
  - THERAPY NON-RESPONDER [None]
